FAERS Safety Report 10736249 (Version 1)
Quarter: 2015Q1

REPORT INFORMATION
  Report Type: Spontaneous
  Country: JP (occurrence: JP)
  Receive Date: 20150126
  Receipt Date: 20150126
  Transmission Date: 20150721
  Serious: Yes (Other)
  Sender: FDA-Public Use
  Company Number: JP-BAYER-2015-011010

PATIENT
  Sex: Female

DRUGS (3)
  1. DACARBAZINE. [Suspect]
     Active Substance: DACARBAZINE
     Indication: PARAGANGLION NEOPLASM MALIGNANT
     Dosage: CVD REGIMEN
  2. CYCLOPHOSPHAMIDE. [Suspect]
     Active Substance: CYCLOPHOSPHAMIDE
     Indication: PARAGANGLION NEOPLASM MALIGNANT
     Dosage: CVD REGIMEN
  3. VINCRISTINE [Suspect]
     Active Substance: VINCRISTINE
     Indication: PARAGANGLION NEOPLASM MALIGNANT
     Dosage: CVD REGIMEN

REACTIONS (3)
  - Psychiatric decompensation [None]
  - Delusion [None]
  - Product use issue [None]
